FAERS Safety Report 4757951-8 (Version None)
Quarter: 2005Q3

REPORT INFORMATION
  Report Type: 
  Country: None (occurrence: None)
  Receive Date: 20050830
  Receipt Date: 20050818
  Transmission Date: 20060218
  Serious: Yes (Hospitalization, Other)
  Sender: FDA-Public Use
  Company Number: 2005118329

PATIENT
  Age: 41 Year
  Sex: Female
  Weight: 65.7716 kg

DRUGS (14)
  1. NITROSTAT [Suspect]
     Indication: CHEST PAIN
     Dosage: 0.4 MG (0.4 MG, PRN),
     Dates: start: 20020101
  2. ISOSORBIDE MONONITRATE [Suspect]
     Indication: ILL-DEFINED DISORDER
     Dosage: (30 MG,)
  3. NITRO PATCH (GLYCERYL TRINITRATE) [Concomitant]
  4. HYDROCHLOROTHIAZIDE [Concomitant]
  5. LORAZEPAM [Concomitant]
  6. PHENERGAN ^AVENTIS PHARMA^ (PROMETHAZINE HYDROCHLORIDE) [Concomitant]
  7. INDERAL LA [Concomitant]
  8. EFFEXOR [Concomitant]
  9. CARDIZEM [Concomitant]
  10. AMBIEN [Concomitant]
  11. TIZANIDINE HCL [Concomitant]
  12. HYDROCODONE (HYDROCODONE) [Concomitant]
  13. ACETYLSALICYLIC ACID SRT [Concomitant]
  14. PRAVACHOL [Concomitant]

REACTIONS (6)
  - AMNESIA [None]
  - CEREBROVASCULAR ACCIDENT [None]
  - DRUG DOSE OMISSION [None]
  - DYSPNOEA [None]
  - PAIN IN EXTREMITY [None]
  - PRINZMETAL ANGINA [None]
